FAERS Safety Report 19247842 (Version 4)
Quarter: 2021Q3

REPORT INFORMATION
  Report Type: Spontaneous
  Country: JP (occurrence: JP)
  Receive Date: 20210512
  Receipt Date: 20210902
  Transmission Date: 20211014
  Serious: Yes (Other)
  Sender: FDA-Public Use
  Company Number: JP-AMGEN-JPNSP2021010560

PATIENT
  Age: 22 Year
  Sex: Male
  Weight: 68 kg

DRUGS (13)
  1. DEXART [Concomitant]
     Active Substance: DEXAMETHASONE SODIUM PHOSPHATE
     Indication: PROPHYLAXIS
     Dosage: 6.6 MILLIGRAM, QD
     Dates: start: 20210114, end: 20210115
  2. DEXART [Concomitant]
     Active Substance: DEXAMETHASONE SODIUM PHOSPHATE
     Dosage: 19.8 MILLIGRAM, QD
     Dates: start: 20210119, end: 20210119
  3. BLINCYTO [Suspect]
     Active Substance: BLINATUMOMAB
     Dosage: 28 MICROGRAM, QD
     Route: 041
     Dates: start: 20210225, end: 2021
  4. DEXART [Concomitant]
     Active Substance: DEXAMETHASONE SODIUM PHOSPHATE
     Indication: PROPHYLAXIS
     Dosage: 1.98 MILLIGRAM, QD
     Dates: start: 20210112, end: 20210113
  5. DEXART [Concomitant]
     Active Substance: DEXAMETHASONE SODIUM PHOSPHATE
     Dosage: 3.3 MILLIGRAM, QD
     Dates: start: 20210116, end: 20210116
  6. SOLU?CORTEF [Concomitant]
     Active Substance: HYDROCORTISONE SODIUM SUCCINATE
     Indication: PROPHYLAXIS
     Dosage: 100 MILLIGRAM, QD
     Dates: start: 20210112, end: 20210113
  7. BLINCYTO [Suspect]
     Active Substance: BLINATUMOMAB
     Dosage: 28 MICROGRAM, QD
     Route: 041
     Dates: start: 20210119, end: 20210208
  8. BLINCYTO [Suspect]
     Active Substance: BLINATUMOMAB
     Indication: B PRECURSOR TYPE ACUTE LEUKAEMIA
     Dosage: 9 MICROGRAM, QD
     Route: 041
     Dates: start: 20210112, end: 20210118
  9. DEXART [Concomitant]
     Active Substance: DEXAMETHASONE SODIUM PHOSPHATE
     Dosage: 1.65 MILLIGRAM, QD
     Dates: start: 20210117, end: 20210117
  10. SOLDEM 3A [Concomitant]
     Active Substance: CARBOHYDRATES\POTASSIUM CHLORIDE\SODIUM CHLORIDE\SODIUM LACTATE
     Indication: FLUID REPLACEMENT
     Dosage: 1000 MILLILITER, QD
     Dates: start: 20210112, end: 20210113
  11. BLINCYTO [Suspect]
     Active Substance: BLINATUMOMAB
     Dosage: 28 MICROGRAM, QD
     Route: 041
     Dates: start: 2021, end: 20210430
  12. DEXART [Concomitant]
     Active Substance: DEXAMETHASONE SODIUM PHOSPHATE
     Dosage: 6.6 MILLIGRAM, QD
     Dates: start: 20210120, end: 20210120
  13. DEXART [Concomitant]
     Active Substance: DEXAMETHASONE SODIUM PHOSPHATE
     Dosage: 3.3 MILLIGRAM, QD
     Dates: start: 20210121, end: 20210121

REACTIONS (8)
  - Intentional product misuse [Unknown]
  - Hyperbilirubinaemia [Recovering/Resolving]
  - Injection site haemorrhage [Recovered/Resolved]
  - Rash erythematous [Recovering/Resolving]
  - Anaemia [Not Recovered/Not Resolved]
  - Platelet count decreased [Not Recovered/Not Resolved]
  - Therapy non-responder [Unknown]
  - Acute lymphocytic leukaemia recurrent [Unknown]

NARRATIVE: CASE EVENT DATE: 2021
